APPROVED DRUG PRODUCT: OMNICEF
Active Ingredient: CEFDINIR
Strength: 300MG **Federal Register determination that product was not discontinued or withdrawn for safety or effectiveness reasons**
Dosage Form/Route: CAPSULE;ORAL
Application: N050739 | Product #001
Applicant: ABBVIE INC
Approved: Dec 4, 1997 | RLD: Yes | RS: No | Type: DISCN